FAERS Safety Report 5950972-9 (Version None)
Quarter: 2008Q4

REPORT INFORMATION
  Report Type: 
  Country: None (occurrence: None)
  Receive Date: 20081110
  Receipt Date: 20081029
  Transmission Date: 20090506
  Serious: Yes (Death, Hospitalization)
  Sender: FDA-Public Use
  Company Number: CLOF-10471

PATIENT
  Age: 70 Year
  Sex: Female

DRUGS (44)
  1. CLOFARABINE (CLOFARABINE) 30 MG/M2 [Suspect]
     Indication: ACUTE MYELOID LEUKAEMIA
     Dosage: 30 MG/M2, QDX5, INTRAVENOUS
     Route: 042
     Dates: start: 20070309, end: 20070313
  2. BENADRYL [Concomitant]
  3. AMBIEN [Concomitant]
  4. . [Concomitant]
  5. ACYCLOVIR [Concomitant]
  6. . [Concomitant]
  7. ALLOPURINOL [Concomitant]
  8. AMLODIPINE [Concomitant]
  9. . [Concomitant]
  10. CALCIUM GLUCONATE [Concomitant]
  11. . [Concomitant]
  12. . [Concomitant]
  13. CALCIUM GLUCONATE [Concomitant]
  14. CEFEPIME [Concomitant]
  15. DOCUSATE (DOCUSATE) [Concomitant]
  16. FAMOTIDINE [Concomitant]
  17. FUROSEMIDE [Concomitant]
  18. FUROSEMIDE [Concomitant]
  19. HYDROCHLOROTHIAZIDE [Concomitant]
  20. HYDROCORTISONE [Concomitant]
  21. HYDROXYUREA [Concomitant]
  22. LEVOTHYROXINE SODIUM [Concomitant]
  23. LISINORPIL (LISINOPRIL) [Concomitant]
  24. LORAZEPAM [Concomitant]
  25. LORAZEPAM [Concomitant]
  26. MAGNESIUM OXIDE (MAGNESIUM OXIDE) [Concomitant]
  27. MAGNESIUM SULFATE [Concomitant]
  28. METOPROLOL TARTRATE [Concomitant]
  29. . [Concomitant]
  30. MULTIVITAMINS AND IRON [Concomitant]
  31. ONDASETRON (ONDANSETRON) [Concomitant]
  32. PANTOPRAZOLE SODIUM [Concomitant]
  33. . [Concomitant]
  34. . [Concomitant]
  35. PHENYTOIN [Concomitant]
  36. POTASSIUM CHLORIDE [Concomitant]
  37. . [Concomitant]
  38. SENNA [Concomitant]
  39. ACETAMINOPHEN [Concomitant]
  40. ALBUTEROL [Concomitant]
  41. . [Concomitant]
  42. IPRATROPIUM BROMIDE [Concomitant]
  43. PERCOCET [Concomitant]
  44. DEXTROSE [Concomitant]

REACTIONS (11)
  - DRUG LEVEL INCREASED [None]
  - ENCEPHALOPATHY [None]
  - FALL [None]
  - HYPOXIA [None]
  - MELAENA [None]
  - PLATELET COUNT DECREASED [None]
  - RENAL FAILURE ACUTE [None]
  - RESPIRATORY DISTRESS [None]
  - RESTLESSNESS [None]
  - SOMNOLENCE [None]
  - STATUS EPILEPTICUS [None]
